FAERS Safety Report 6904418-4 (Version None)
Quarter: 2010Q3

REPORT INFORMATION
  Report Type: 
  Country: None (occurrence: None)
  Receive Date: 20100804
  Receipt Date: 20090511
  Transmission Date: 20110219
  Serious: No
  Sender: FDA-Public Use
  Company Number: US-PFIZER INC-2009211842

PATIENT
  Sex: Male
  Weight: 73.935 kg

DRUGS (4)
  1. LYRICA [Suspect]
     Indication: NERVE INJURY
     Dosage: 500 MG, 2X/DAY
  2. VERAPAMIL [Concomitant]
     Dosage: UNK
  3. LIPITOR [Concomitant]
     Dosage: UNK
  4. ACETYLSALICYLIC ACID [Concomitant]
     Dosage: UNK

REACTIONS (4)
  - INCORRECT DOSE ADMINISTERED [None]
  - INSOMNIA [None]
  - SOMNOLENCE [None]
  - VISION BLURRED [None]
